FAERS Safety Report 20735989 (Version 2)
Quarter: 2022Q2

REPORT INFORMATION
  Report Type: Spontaneous
  Country: IT (occurrence: IT)
  Receive Date: 20220421
  Receipt Date: 20220503
  Transmission Date: 20220721
  Serious: Yes (Other)
  Sender: FDA-Public Use
  Company Number: IT-TEVA-2022-IT-2028270

PATIENT
  Age: 69 Year
  Sex: Female

DRUGS (5)
  1. METHOTREXATE [Suspect]
     Active Substance: METHOTREXATE
     Indication: Bing-Neel syndrome
     Dosage: RECEIVED SIX CYCLES
     Route: 065
     Dates: start: 201508, end: 201602
  2. CYTARABINE [Suspect]
     Active Substance: CYTARABINE
     Indication: Bing-Neel syndrome
     Dosage: RECEIVED SIX CYCLES
     Route: 065
     Dates: start: 201508, end: 201602
  3. THIOTEPA [Suspect]
     Active Substance: THIOTEPA
     Indication: Bing-Neel syndrome
     Dosage: RECEIVED SIX CYCLES
     Route: 065
     Dates: start: 201508, end: 201602
  4. RITUXIMAB [Suspect]
     Active Substance: RITUXIMAB
     Indication: Bing-Neel syndrome
     Dosage: RECEIVED SIX CYCLES
     Route: 065
     Dates: start: 201508, end: 201602
  5. LEUCOVORIN [Concomitant]
     Active Substance: LEUCOVORIN
     Indication: Acute kidney injury
     Route: 065

REACTIONS (2)
  - Febrile neutropenia [Recovering/Resolving]
  - Off label use [Unknown]

NARRATIVE: CASE EVENT DATE: 20150101
